FAERS Safety Report 12471601 (Version 1)
Quarter: 2016Q2

REPORT INFORMATION
  Report Type: Spontaneous
  Country: US (occurrence: US)
  Receive Date: 20160616
  Receipt Date: 20160616
  Transmission Date: 20160815
  Serious: No
  Sender: FDA-Public Use
  Company Number: US-GLAXOSMITHKLINE-US2016085520

PATIENT
  Age: 96 Year
  Sex: Female

DRUGS (1)
  1. VOLTAREN [Suspect]
     Active Substance: DICLOFENAC SODIUM
     Indication: KNEE ARTHROPLASTY
     Dosage: UNK UNK, BID

REACTIONS (4)
  - Product use issue [Unknown]
  - Fall [Unknown]
  - Joint injury [Unknown]
  - Incorrect dose administered [Unknown]
